FAERS Safety Report 6509170-2 (Version None)
Quarter: 2009Q4

REPORT INFORMATION
  Report Type: 
  Country: None (occurrence: None)
  Receive Date: 20091221
  Receipt Date: 20091210
  Transmission Date: 20100525
  Serious: Yes (Hospitalization)
  Sender: FDA-Public Use
  Company Number: FR-GILEAD-2009-0025915

PATIENT
  Sex: Male

DRUGS (18)
  1. TRUVADA [Suspect]
     Indication: HIV INFECTION
     Route: 048
     Dates: start: 20081119
  2. ANSATIPINE [Suspect]
     Route: 048
     Dates: start: 20081101
  3. ANSATIPINE [Suspect]
     Dates: start: 20090701
  4. ANSATIPINE [Suspect]
     Dates: start: 20091016, end: 20091105
  5. PREZISTA [Suspect]
     Route: 048
     Dates: start: 20081218
  6. NORVIR [Suspect]
     Route: 048
     Dates: start: 20081218
  7. CIFLOX [Concomitant]
     Dates: start: 20080101
  8. ZECLAR [Concomitant]
     Dates: start: 20080101
  9. BACTRIM [Concomitant]
     Dates: start: 20080101
  10. TRIFLUCAN [Concomitant]
     Dates: start: 20080101
  11. MYAMBUTOL [Concomitant]
  12. AMIKLIN [Concomitant]
  13. IZILOX [Concomitant]
  14. NEXIUM [Concomitant]
  15. ASCORBIC ACID [Concomitant]
  16. DEROXAT [Concomitant]
  17. THERALENE [Concomitant]
  18. VALIUM [Concomitant]

REACTIONS (1)
  - NEUTROPENIA [None]
